FAERS Safety Report 4802400-4 (Version None)
Quarter: 2005Q4

REPORT INFORMATION
  Report Type: 
  Country: None (occurrence: None)
  Receive Date: 20051014
  Receipt Date: 20040920
  Transmission Date: 20060501
  Serious: Yes (Other)
  Sender: FDA-Public Use
  Company Number: 2004068383

PATIENT
  Age: 62 Year
  Sex: Female
  Weight: 72.5755 kg

DRUGS (5)
  1. NEURONTIN [Suspect]
     Indication: POST HERPETIC NEURALGIA
     Dosage: 900 MG (300 MG, 3 IN 1D), ORAL
     Route: 048
     Dates: start: 20040601
  2. AMITRIPTYLINE HCL [Concomitant]
  3. FLUOXETINE [Concomitant]
  4. ATENOLOL [Concomitant]
  5. DIURETICS (DIURETICS) [Concomitant]

REACTIONS (10)
  - BALANCE DISORDER [None]
  - DRY MOUTH [None]
  - EAR DISORDER [None]
  - PULMONARY OEDEMA [None]
  - PYREXIA [None]
  - SINUSITIS [None]
  - URINARY TRACT INFECTION [None]
  - VAGINAL DISCHARGE [None]
  - VAGINAL HAEMORRHAGE [None]
  - VISION BLURRED [None]
